FAERS Safety Report 4633817-9 (Version None)
Quarter: 2005Q2

REPORT INFORMATION
  Report Type: 
  Country: None (occurrence: None)
  Receive Date: 20050413
  Receipt Date: 20050404
  Transmission Date: 20051028
  Serious: Yes (Death, Hospitalization)
  Sender: FDA-Public Use
  Company Number: PHRM2005FR01206

PATIENT
  Age: 83 Year
  Sex: Male

DRUGS (7)
  1. AREDIA [Suspect]
     Indication: OSTEOLYSIS
     Dosage: 60 MG, ONCE/SINGLE
     Route: 042
     Dates: start: 20050105, end: 20050105
  2. CORTANCYL [Suspect]
     Dosage: 8 MG DAILY
     Route: 048
     Dates: end: 20050112
  3. RISORDAN [Suspect]
     Dosage: 20 MG DAILY
     Route: 048
     Dates: end: 20050109
  4. BURINEX [Suspect]
     Dosage: UNK, UNK
     Route: 048
     Dates: start: 20041201, end: 20050107
  5. SKENAN [Suspect]
     Dosage: 10 MG, BID
     Route: 048
     Dates: start: 20050104, end: 20050109
  6. ZESTRIL [Suspect]
     Dosage: 5 MG DAILY
     Route: 048
     Dates: start: 20050106, end: 20050109
  7. KARDEGIC [Concomitant]

REACTIONS (3)
  - ANURIA [None]
  - DEHYDRATION [None]
  - RENAL FAILURE ACUTE [None]
